FAERS Safety Report 7456764-6 (Version None)
Quarter: 2011Q2

REPORT INFORMATION
  Report Type: 
  Country: None (occurrence: None)
  Receive Date: 20110504
  Receipt Date: 20110502
  Transmission Date: 20111010
  Serious: Yes (Hospitalization)
  Sender: FDA-Public Use
  Company Number: ES-BRISTOL-MYERS SQUIBB COMPANY-13245816

PATIENT
  Age: 61 Year
  Sex: Male

DRUGS (3)
  1. CETUXIMAB [Suspect]
     Indication: HEAD AND NECK CANCER
     Dosage: REC DOSE ON 14SEP05
     Route: 041
     Dates: start: 20050818
  2. CISPLATIN [Suspect]
     Indication: HEAD AND NECK CANCER
     Dosage: REC DOSE ON 14SEP05
     Route: 042
     Dates: start: 20050818
  3. FLUOROURACIL [Suspect]
     Indication: HEAD AND NECK CANCER
     Dosage: REC DOSE ON 14SEP05
     Route: 042
     Dates: start: 20050818

REACTIONS (2)
  - PERIPHERAL ISCHAEMIA [None]
  - THROMBOSIS [None]
